FAERS Safety Report 8513769-1 (Version None)
Quarter: 2012Q3

REPORT INFORMATION
  Report Type: 
  Country: None (occurrence: None)
  Receive Date: 20120717
  Receipt Date: 20120714
  Transmission Date: 20120928
  Serious: No
  Sender: FDA-Public Use
  Company Number: US-PFIZER INC-2012169726

PATIENT

DRUGS (1)
  1. JUNIOR STRENGTH ADVIL [Suspect]
     Dosage: UNK
     Route: 048

REACTIONS (1)
  - THROAT IRRITATION [None]
